FAERS Safety Report 6099344-X (Version None)
Quarter: 2009Q1

REPORT INFORMATION
  Report Type: 
  Country: None (occurrence: None)
  Receive Date: 20090303
  Receipt Date: 20090113
  Transmission Date: 20090719
  Serious: Yes (Hospitalization)
  Sender: FDA-Public Use
  Company Number: FR-PFIZER INC-2008160888

PATIENT

DRUGS (7)
  1. ZYVOXID [Suspect]
     Dosage: 300 MG, 2X/DAY
     Route: 042
     Dates: start: 20081103, end: 20081112
  2. VANCOMYCIN [Suspect]
     Route: 042
     Dates: start: 20081013, end: 20081119
  3. TAZOCILLINE [Suspect]
     Dosage: 4G/500MG
     Route: 042
     Dates: start: 20081021, end: 20081113
  4. POSACONAZOLE [Concomitant]
     Dosage: 800 MG, 1X/DAY
     Route: 042
     Dates: start: 20081103, end: 20081124
  5. CANCIDAS [Concomitant]
     Dosage: 300 MG, 1X/DAY
     Route: 042
     Dates: start: 20081031
  6. AMBISOME [Concomitant]
     Dosage: 400 MG, 1X/DAY
     Route: 042
     Dates: start: 20081021
  7. GENTALLINE [Concomitant]
     Dates: start: 20081013, end: 20081021

REACTIONS (1)
  - DRUG RASH WITH EOSINOPHILIA AND SYSTEMIC SYMPTOMS [None]
